FAERS Safety Report 9053947 (Version 1)
Quarter: 2013Q1

REPORT INFORMATION
  Report Type: Report from Study
  Country: US (occurrence: US)
  Receive Date: 20130208
  Receipt Date: 20130208
  Transmission Date: 20140127
  Serious: Yes (Hospitalization)
  Sender: FDA-Public Use
  Company Number: US-AMGEN-USACT2010011993

PATIENT
  Age: 86 Year
  Sex: Male

DRUGS (22)
  1. DARBEPOETIN ALFA [Suspect]
     Indication: CARDIAC FAILURE
     Dates: start: 20091202
  2. WARFARIN [Concomitant]
  3. ACETAMINOPHEN [Concomitant]
     Dosage: 500 MG, UNK
  4. ALENDRONATE [Concomitant]
     Dosage: 40 MG, QD
     Route: 048
  5. ALOE VESTA 2-N-1 ANTIFUNGAL [Concomitant]
     Dosage: UNK UNK, TID
     Route: 061
  6. AMITRIPTYLINE [Concomitant]
     Dosage: 25 MG, QD
  7. BACITRACIN [Concomitant]
     Dosage: UNK
  8. CHOLECALCIFEROL [Concomitant]
     Dosage: 1000 UNIT, QD
  9. COLCHICINE [Concomitant]
     Dosage: 0.6 MG, 4 TIMES/WK
  10. LANOXIN [Concomitant]
     Dosage: 0.125 MG, QD
  11. FERROUS GLUCONATE [Concomitant]
     Dosage: 325 MG, UNK
     Route: 048
  12. FINASTERIDE [Concomitant]
     Dosage: 5 MG, QD
     Route: 048
  13. FLUOROURACIL [Concomitant]
     Dosage: UNK UNK, BID
     Route: 061
  14. FUROSEMIDE [Concomitant]
     Dosage: 20 MG, BID
  15. KETOCONAZOLE [Concomitant]
     Dosage: UNK UNK, BID
     Route: 061
  16. LISINOPRIL [Concomitant]
     Dosage: 40 MG, UNK
  17. METHYLPREDNISOLONE [Concomitant]
     Dosage: 4 MG, UNK
     Route: 048
  18. MULTIVITAMINS, COMBINATIONS [Concomitant]
     Dosage: UNK UNK, QD
     Route: 048
  19. NYSTATIN [Concomitant]
  20. TERAZOSIN [Concomitant]
     Dosage: 10 MG, QD
  21. TRIAMCINOLONE [Concomitant]
     Route: 061
  22. VANICREAM [Concomitant]

REACTIONS (2)
  - Peripheral arterial occlusive disease [Recovered/Resolved]
  - Femoral artery occlusion [Recovered/Resolved]
